FAERS Safety Report 10595254 (Version 1)
Quarter: 2014Q4

REPORT INFORMATION
  Report Type: Spontaneous
  Country: CL (occurrence: None)
  Receive Date: 20141118
  Receipt Date: 20141118
  Transmission Date: 20150529
  Serious: Yes (Hospitalization)
  Sender: FDA-Public Use
  Company Number: NSR_01668_2014

PATIENT
  Age: 2 Month
  Sex: Male

DRUGS (1)
  1. PROPRANOLOL [Suspect]
     Active Substance: PROPRANOLOL\PROPRANOLOL HYDROCHLORIDE
     Indication: HAEMANGIOMA
     Dosage: NOT THE PRESCRIBED AMOUNT ORAL
     Route: 048

REACTIONS (4)
  - Restlessness [None]
  - Euphoric mood [None]
  - Insomnia [None]
  - Accidental overdose [None]
